FAERS Safety Report 7370890 (Version 4)
Quarter: 2014Q1

REPORT INFORMATION
  Report Type: Spontaneous
  Country: US (occurrence: US)
  Receive Date: 20100429
  Receipt Date: 20140303
  Transmission Date: 20141002
  Serious: Yes (Hospitalization)
  Sender: FDA-Public Use
  Company Number: US-MILLENNIUM PHARMACEUTICALS, INC.-2010-02250

PATIENT
  Age: 73 Year
  Sex: Male

DRUGS (1)
  1. VELCADE [Suspect]
     Indication: PLASMA CELL MYELOMA
     Dosage: 1.3 MG/M2, ON DAY 1, 5, 8 AND 11; (STRENGTH: 2.5 MG)
     Route: 040
     Dates: start: 20100219, end: 20100316

REACTIONS (2)
  - Myopathy [Recovered/Resolved]
  - Neuropathy peripheral [Recovered/Resolved]
